FAERS Safety Report 15995665 (Version 2)
Quarter: 2019Q1

REPORT INFORMATION
  Report Type: Report from Study
  Country: US (occurrence: US)
  Receive Date: 20190222
  Receipt Date: 20190308
  Transmission Date: 20190418
  Serious: Yes (Hospitalization)
  Sender: FDA-Public Use
  Company Number: US-VERTEX PHARMACEUTICALS-2019-001367

PATIENT
  Age: 4 Year
  Sex: Male
  Weight: 19 kg

DRUGS (22)
  1. SINGULAIR [Concomitant]
     Active Substance: MONTELUKAST SODIUM
     Indication: CYSTIC FIBROSIS LUNG
     Dosage: 4 MG, QD
     Route: 048
     Dates: start: 201604
  2. CREON [Concomitant]
     Active Substance: PANCRELIPASE AMYLASE\PANCRELIPASE LIPASE\PANCRELIPASE PROTEASE
     Indication: PANCREATIC FAILURE
     Dosage: 2 CAPS WITH MEALS
     Route: 048
     Dates: start: 201406
  3. HYPERSAL [Concomitant]
     Indication: CYSTIC FIBROSIS LUNG
     Dosage: 1 VIAL, BID
     Route: 055
     Dates: start: 201610
  4. PULMOZYME [Concomitant]
     Active Substance: DORNASE ALFA
     Indication: CYSTIC FIBROSIS LUNG
     Dosage: 1 VIAL, QD
     Route: 055
     Dates: start: 20140710
  5. AZITHROMYCIN ANHYDROUS. [Concomitant]
     Active Substance: AZITHROMYCIN ANHYDROUS
     Indication: CYSTIC FIBROSIS LUNG
     Dosage: 250 MG, QD (MWF)
     Route: 048
     Dates: start: 201811
  6. ALBUTEROL                          /00139501/ [Concomitant]
     Active Substance: ALBUTEROL
     Indication: CYSTIC FIBROSIS LUNG
     Dosage: 1 VIAL, BID
     Route: 055
     Dates: start: 201406
  7. PREVACID [Concomitant]
     Active Substance: LANSOPRAZOLE
     Indication: GASTROOESOPHAGEAL REFLUX DISEASE
     Dosage: 1 TABLET, BID
     Route: 048
     Dates: start: 20160317
  8. FLUTICASONE. [Concomitant]
     Active Substance: FLUTICASONE
     Dosage: 1 SPRAY, QD
     Route: 045
  9. ALBUTEROL                          /00139501/ [Concomitant]
     Active Substance: ALBUTEROL
     Dosage: 2 PUFFS, PRN
     Route: 055
     Dates: start: 201603
  10. CLARITIN [Concomitant]
     Active Substance: LORATADINE
     Indication: CHRONIC SINUSITIS
     Dosage: 2.5 MILLILITER
     Dates: start: 201405
  11. HYPERSAL [Concomitant]
     Dosage: 0.65 %
     Route: 045
  12. CULTURELLE FOR KIDS                /03562201/ [Concomitant]
     Indication: CONSTIPATION
     Dosage: 1 TAABLET, QD WHEN ON ANTIBIOTICS
     Route: 048
     Dates: start: 201610
  13. MIRALAX [Concomitant]
     Active Substance: POLYETHYLENE GLYCOL 3350
     Indication: CONSTIPATION
     Dosage: 1/2 CAP, QD
     Route: 048
     Dates: start: 201601
  14. LORATADINE. [Concomitant]
     Active Substance: LORATADINE
     Dosage: 2.5 MILLILITER, QD
     Route: 048
  15. MONTELUKAST [Concomitant]
     Active Substance: MONTELUKAST SODIUM
     Dosage: 4 MG, QD
     Route: 048
  16. VX-809/VX-770 COMBINATION [Suspect]
     Active Substance: IVACAFTOR\LUMACAFTOR
     Indication: CYSTIC FIBROSIS
     Dosage: 150 MG LUMACAFTOR/188 MG IVACAFTOR, BID
     Route: 048
     Dates: start: 20170227
  17. SENNA                              /00142201/ [Concomitant]
     Active Substance: SENNA LEAF
     Indication: CONSTIPATION
     Dosage: 5 MILLILITER, QD
     Route: 048
     Dates: start: 201406
  18. BUDESONIDE. [Concomitant]
     Active Substance: BUDESONIDE
     Dosage: 0.5 MG/2 ML, BID
     Route: 055
  19. ESOMEPRAZOLE. [Concomitant]
     Active Substance: ESOMEPRAZOLE MAGNESIUM
     Dosage: 1 DOSAGE FORM, QD
     Route: 048
  20. HYPERSAL [Concomitant]
     Dosage: 0.9 %, BID
     Route: 055
  21. PANCRELIPASE. [Concomitant]
     Active Substance: PANCRELIPASE
     Dosage: 2 CAPS WITH EACH MEAL AND SNACK
     Route: 048
  22. LEVALBUTEROL                       /01419301/ [Concomitant]
     Active Substance: LEVALBUTEROL
     Dosage: 0.63 MG/3 ML, QID
     Route: 055

REACTIONS (1)
  - Gastroenteritis viral [Recovered/Resolved]

NARRATIVE: CASE EVENT DATE: 20190211
